FAERS Safety Report 4884298-1 (Version None)
Quarter: 2005Q4

REPORT INFORMATION
  Report Type: 
  Country: None (occurrence: None)
  Receive Date: 20051201
  Receipt Date: 20050906
  Transmission Date: 20060501
  Serious: No
  Sender: FDA-Public Use
  Company Number: 2005PV001641

PATIENT
  Age: 48 Year
  Sex: Male
  Weight: 103.4201 kg

DRUGS (11)
  1. BYETTA [Suspect]
     Indication: DIABETES MELLITUS NON-INSULIN-DEPENDENT
     Dosage: 5 MCG; 10 MCG : BID;SC
     Route: 058
     Dates: start: 20050803
  2. BYETTA [Suspect]
     Indication: DIABETES MELLITUS NON-INSULIN-DEPENDENT
     Dosage: 5 MCG; 10 MCG : BID;SC
     Route: 058
     Dates: start: 20050902
  3. BENICAR HCT [Concomitant]
  4. NAPROSYN [Concomitant]
  5. ASPIRIN [Concomitant]
  6. MULTIVITAMIN [Concomitant]
  7. NORVASC [Concomitant]
  8. ALEVE [Concomitant]
  9. GLUCOPHAGE [Concomitant]
  10. ACTOS [Concomitant]
  11. GLUCOVANCE [Concomitant]

REACTIONS (7)
  - ASTHENIA [None]
  - BLOOD GLUCOSE INCREASED [None]
  - DECREASED APPETITE [None]
  - DRUG EFFECT DECREASED [None]
  - DYSPNOEA [None]
  - HYPERHIDROSIS [None]
  - WEIGHT DECREASED [None]
